FAERS Safety Report 8105410-7 (Version None)
Quarter: 2012Q1

REPORT INFORMATION
  Report Type: 
  Country: None (occurrence: None)
  Receive Date: 20120201
  Receipt Date: 20120124
  Transmission Date: 20120608
  Serious: Yes (Hospitalization, Disabling, Other)
  Sender: FDA-Public Use
  Company Number: US-CELGENEUS-163-21880-12011167

PATIENT
  Sex: Male

DRUGS (11)
  1. REVLIMID [Suspect]
     Indication: MULTIPLE MYELOMA
     Dosage: 25 MILLIGRAM
     Route: 048
     Dates: start: 20090601
  2. WHOLE BLOOD [Concomitant]
     Route: 065
  3. REVLIMID [Suspect]
     Dosage: 5 MILLIGRAM
     Route: 048
     Dates: start: 20110501
  4. ARAVA [Concomitant]
     Indication: RHEUMATOID ARTHRITIS
     Route: 065
  5. CELEBREX [Concomitant]
     Route: 065
  6. REVLIMID [Suspect]
     Dosage: 5 MILLIGRAM
     Route: 048
     Dates: start: 20101001
  7. PLAQUENIL [Concomitant]
     Indication: RHEUMATOID ARTHRITIS
     Dosage: 20 MILLIGRAM
     Route: 065
  8. AREDIA [Suspect]
     Dates: start: 20120105
  9. ENBREL [Concomitant]
     Indication: RHEUMATOID ARTHRITIS
     Route: 065
  10. REVLIMID [Suspect]
     Dosage: 10 MILLIGRAM
     Route: 048
     Dates: start: 20110201
  11. MINOCYCLINE HCL [Concomitant]
     Indication: RHEUMATOID ARTHRITIS
     Dosage: 100 MILLIGRAM
     Route: 065

REACTIONS (5)
  - ARTHROPATHY [None]
  - NEUROPATHY PERIPHERAL [None]
  - WHITE BLOOD CELL COUNT DECREASED [None]
  - DIARRHOEA [None]
  - CLAVICLE FRACTURE [None]
